FAERS Safety Report 5305039-X (Version None)
Quarter: 2007Q2

REPORT INFORMATION
  Report Type: 
  Country: None (occurrence: None)
  Receive Date: 20070423
  Receipt Date: 20070413
  Transmission Date: 20071010
  Serious: Yes (Death)
  Sender: FDA-Public Use
  Company Number: JP-MERCK-0703USA04911

PATIENT
  Age: 84 Year
  Sex: Male

DRUGS (7)
  1. HYZAAR [Suspect]
     Indication: HYPERTENSION
     Route: 048
     Dates: start: 20070223, end: 20070316
  2. ASPIRIN [Suspect]
     Indication: ANGINA PECTORIS
     Route: 048
     Dates: start: 20070223, end: 20070316
  3. SELBEX [Suspect]
     Indication: PROPHYLAXIS
     Route: 048
     Dates: start: 20070223, end: 20070316
  4. SIGMART [Suspect]
     Indication: ANGINA PECTORIS
     Route: 048
     Dates: start: 20070202, end: 20070316
  5. COZAAR [Suspect]
     Indication: HYPERTENSION
     Route: 048
     Dates: start: 20070309, end: 20070316
  6. COZAAR [Suspect]
     Route: 048
     Dates: start: 20070202, end: 20070215
  7. COZAAR [Suspect]
     Route: 048
     Dates: start: 20070216, end: 20070222

REACTIONS (3)
  - BRAIN NATRIURETIC PEPTIDE INCREASED [None]
  - CARDIO-RESPIRATORY ARREST [None]
  - SUDDEN DEATH [None]
